FAERS Safety Report 24893514 (Version 1)
Quarter: 2025Q1

REPORT INFORMATION
  Report Type: Report from Study
  Country: CN (occurrence: CN)
  Receive Date: 20250128
  Receipt Date: 20250128
  Transmission Date: 20250408
  Serious: Yes (Other)
  Sender: ROCHE
  Company Number: CN-ROCHE-10000186183

PATIENT

DRUGS (7)
  1. TRASTUZUMAB [Suspect]
     Active Substance: TRASTUZUMAB
     Indication: Breast cancer metastatic
     Route: 065
  2. TRASTUZUMAB [Suspect]
     Active Substance: TRASTUZUMAB
     Route: 065
  3. CAPECITABINE [Concomitant]
     Active Substance: CAPECITABINE
     Route: 065
  4. GEMCITABINE [Concomitant]
     Active Substance: GEMCITABINE
     Route: 065
  5. VINORELBINE [Concomitant]
     Active Substance: VINORELBINE TARTRATE
     Route: 065
  6. ERIBULIN [Concomitant]
     Active Substance: ERIBULIN
     Route: 065
  7. ETOPOSIDE [Concomitant]
     Active Substance: ETOPOSIDE
     Route: 065

REACTIONS (14)
  - Neutropenia [Unknown]
  - Anaemia [Unknown]
  - Thrombocytopenia [Unknown]
  - Blood bilirubin increased [Unknown]
  - Transaminases increased [Unknown]
  - Hypothyroidism [Unknown]
  - Palmar-plantar erythrodysaesthesia syndrome [Unknown]
  - Mouth ulceration [Unknown]
  - Hypertension [Unknown]
  - Proteinuria [Unknown]
  - Abdominal pain [Unknown]
  - Ejection fraction decreased [Recovered/Resolved]
  - Epistaxis [Unknown]
  - Thrombosis [Unknown]
